FAERS Safety Report 14747074 (Version 1)
Quarter: 2018Q2

REPORT INFORMATION
  Report Type: Report from Study
  Country: DE (occurrence: DE)
  Receive Date: 20180411
  Receipt Date: 20180411
  Transmission Date: 20180711
  Serious: Yes (Hospitalization, Other)
  Sender: FDA-Public Use
  Company Number: DE-PFIZER INC-2018142601

PATIENT
  Age: 52 Year
  Sex: Female
  Weight: 83 kg

DRUGS (8)
  1. BEVACIZUMAB. [Suspect]
     Active Substance: BEVACIZUMAB
     Dosage: 1200 MG, UNK
     Route: 042
     Dates: start: 20101115
  2. DEXAMETHASONE. [Concomitant]
     Active Substance: DEXAMETHASONE
     Indication: BREAST CANCER
     Dosage: LAST ADMINISTRATION PRIOR TO THE EVENT ON 25 OCT 2010
     Route: 042
     Dates: start: 20100313
  3. BEVACIZUMAB. [Suspect]
     Active Substance: BEVACIZUMAB
     Indication: BREAST CANCER
     Dosage: 1245 MG, UNK
     Route: 042
     Dates: start: 20100313
  4. FENISTIL [Concomitant]
     Active Substance: DIMETHINDENE
     Indication: BREAST CANCER METASTATIC
     Dosage: LAST ADMINISTRATION PRIOR TO THE EVENT ON 25 OCT 2010
     Route: 042
     Dates: start: 20100313
  5. ZOFRAN [Concomitant]
     Active Substance: ONDANSETRON HYDROCHLORIDE
     Indication: BREAST CANCER METASTATIC
     Dosage: LAST ADMINISTRATION PRIOR TO THE EVENT ON 25 OCT 2010
     Route: 042
     Dates: start: 20100313
  6. SEVIKAR [Concomitant]
     Active Substance: AMLODIPINE BESYLATE\OLMESARTAN MEDOXOMIL
     Dosage: UNK, 1X/DAY
     Route: 048
     Dates: start: 20101208
  7. PACLITAXEL. [Suspect]
     Active Substance: PACLITAXEL
     Indication: BREAST CANCER
     Dosage: 175 MG/M2, EVERY 3 WEEKS
     Route: 042
     Dates: start: 20100313, end: 20101227
  8. H2 BLOCKER /00397401/ [Concomitant]
     Active Substance: CIMETIDINE
     Indication: BREAST CANCER METASTATIC
     Dosage: LAST ADMINISTRATION PRIOR TO THE EVENT ON 25 OCT 2010
     Route: 042
     Dates: start: 20100313

REACTIONS (19)
  - Chills [Recovered/Resolved]
  - Hypertension [Recovered/Resolved]
  - Arthralgia [Recovered/Resolved]
  - Leukopenia [Recovered/Resolved]
  - Hot flush [Recovered/Resolved]
  - Dysgeusia [Recovered/Resolved]
  - Dyspnoea [Recovered/Resolved]
  - Fatigue [Recovered/Resolved]
  - Incontinence [Recovered/Resolved]
  - Alopecia [Recovered/Resolved]
  - Peripheral sensory neuropathy [Recovered/Resolved]
  - Circulatory collapse [Recovered/Resolved]
  - Bone pain [Recovered/Resolved]
  - Musculoskeletal pain [Recovered/Resolved]
  - Vaginal infection [Recovered/Resolved]
  - General physical health deterioration [Recovered/Resolved]
  - Decreased appetite [Recovered/Resolved]
  - Pyrexia [Recovered/Resolved]
  - Duodenal ulcer [Recovered/Resolved]

NARRATIVE: CASE EVENT DATE: 20100917
